FAERS Safety Report 6593269-9 (Version None)
Quarter: 2010Q1

REPORT INFORMATION
  Report Type: 
  Country: None (occurrence: None)
  Receive Date: 20100222
  Receipt Date: 20100212
  Transmission Date: 20100710
  Serious: No
  Sender: FDA-Public Use
  Company Number: US-B.I. PHARMACEUTICALS,INC./RIDGEFIELD-2010-BP-01037BP

PATIENT
  Age: 53 Year
  Sex: Female
  Weight: 103.87 kg

DRUGS (4)
  1. SPIRIVA [Suspect]
  2. NEXIUM [Concomitant]
  3. ENALAPRIL MALEATE [Concomitant]
  4. PROAIR HFA [Concomitant]

REACTIONS (1)
  - HEADACHE [None]
